FAERS Safety Report 9149279 (Version 1)
Quarter: 2013Q1

REPORT INFORMATION
  Report Type: Spontaneous
  Country: US (occurrence: US)
  Receive Date: 20130308
  Receipt Date: 20130308
  Transmission Date: 20140127
  Serious: No
  Sender: FDA-Public Use
  Company Number: US-PFIZER INC-2013078383

PATIENT
  Age: 53 Year
  Sex: Female
  Weight: 93 kg

DRUGS (5)
  1. CHANTIX [Suspect]
     Indication: SMOKING CESSATION THERAPY
     Dosage: 0.5 MG, 1X/DAY
     Route: 048
     Dates: start: 20130226
  2. CHANTIX [Suspect]
     Dosage: 1 MG, 2X/DAY
     Route: 048
  3. XANAX [Concomitant]
     Dosage: UNK
  4. TRILEPTAL [Concomitant]
     Dosage: UNK
  5. BABY ASPIRIN [Concomitant]
     Dosage: UNK

REACTIONS (1)
  - Headache [Not Recovered/Not Resolved]
